FAERS Safety Report 15234676 (Version 1)
Quarter: 2018Q3

REPORT INFORMATION
  Report Type: Report from Study
  Country: FR (occurrence: FR)
  Receive Date: 20180803
  Receipt Date: 20180803
  Transmission Date: 20181010
  Serious: Yes (Hospitalization)
  Sender: FDA-Public Use
  Company Number: FR-ROCHE-2161181

PATIENT
  Age: 72 Year
  Sex: Female
  Weight: 58 kg

DRUGS (8)
  1. DEDROGYL [Concomitant]
     Active Substance: CALCIFEDIOL
     Route: 065
     Dates: start: 20180705
  2. TRANSIPEG (FRANCE) [Concomitant]
     Route: 065
     Dates: start: 20180705
  3. PROLIA [Concomitant]
     Active Substance: DENOSUMAB
     Route: 065
     Dates: start: 20180705
  4. ALPRAZOLAM. [Concomitant]
     Active Substance: ALPRAZOLAM
     Route: 065
     Dates: start: 20180705
  5. RO 6874281 (FAP IL2V MAB) [Suspect]
     Active Substance: RO-6874281
     Indication: NEOPLASM
     Dosage: MOST RECENT DOSE, CIDI
     Route: 042
     Dates: start: 20180723
  6. IBUPROFEN. [Suspect]
     Active Substance: IBUPROFEN
     Indication: PRODUCT USED FOR UNKNOWN INDICATION
     Dosage: POST MEDICATION AS PER PROTOCOL
     Route: 065
  7. PARACETAMOL [Concomitant]
     Active Substance: ACETAMINOPHEN
     Route: 065
     Dates: start: 20180705
  8. TRASTUZUMAB. [Suspect]
     Active Substance: TRASTUZUMAB
     Indication: NEOPLASM
     Dosage: LOADING DOSE OF (4 MG/KG), CIDI ?MOST RECENT DOSE
     Route: 042
     Dates: start: 20180723, end: 20180723

REACTIONS (1)
  - Blood bilirubin increased [Recovered/Resolved]

NARRATIVE: CASE EVENT DATE: 20180725
